FAERS Safety Report 13364053 (Version 1)
Quarter: 2017Q1

REPORT INFORMATION
  Report Type: Report from Study
  Country: US (occurrence: US)
  Receive Date: 20170323
  Receipt Date: 20170323
  Transmission Date: 20170429
  Serious: Yes (Other)
  Sender: FDA-Public Use
  Company Number: US-BRISTOL-MYERS SQUIBB COMPANY-BMS-2017-015962

PATIENT
  Sex: Female
  Weight: 144.22 kg

DRUGS (2)
  1. ABATACEPT [Suspect]
     Active Substance: ABATACEPT
     Indication: RHEUMATOID ARTHRITIS
     Dosage: 1 DF, UNK
     Route: 065
  2. ABATACEPT [Suspect]
     Active Substance: ABATACEPT
     Indication: RHEUMATOID ARTHRITIS
     Dosage: 125 MG, UNK
     Route: 058
     Dates: start: 20170208

REACTIONS (7)
  - Diabetes mellitus [Unknown]
  - Systemic lupus erythematosus [Unknown]
  - Infection [Unknown]
  - Sinusitis [Unknown]
  - Cataract operation [Unknown]
  - Drug ineffective [Unknown]
  - Hepatic function abnormal [Unknown]
